FAERS Safety Report 21454095 (Version 2)
Quarter: 2022Q4

REPORT INFORMATION
  Report Type: Spontaneous
  Country: JP (occurrence: JP)
  Receive Date: 20221013
  Receipt Date: 20221021
  Transmission Date: 20230112
  Serious: Yes (Other)
  Sender: FDA-Public Use
  Company Number: JP-MSD-2210JPN000266J

PATIENT
  Age: 80 Year
  Sex: Male
  Weight: 53 kg

DRUGS (3)
  1. KEYTRUDA [Suspect]
     Active Substance: PEMBROLIZUMAB
     Indication: Lung squamous cell carcinoma recurrent
     Dosage: UNK
     Route: 041
  2. KEYTRUDA [Suspect]
     Active Substance: PEMBROLIZUMAB
     Dosage: UNK
     Route: 041
  3. INSULIN NOS [Concomitant]
     Active Substance: INSULIN NOS
     Indication: Pancreatogenous diabetes
     Dosage: UNK
     Route: 065

REACTIONS (4)
  - Tumour pseudoprogression [Recovering/Resolving]
  - Pleurisy [Recovering/Resolving]
  - Eosinophil count increased [Recovering/Resolving]
  - Dyspnoea [Recovering/Resolving]
